FAERS Safety Report 24118096 (Version 3)
Quarter: 2024Q3

REPORT INFORMATION
  Report Type: Spontaneous
  Country: JP (occurrence: JP)
  Receive Date: 20240722
  Receipt Date: 20240923
  Transmission Date: 20241016
  Serious: Yes (Hospitalization)
  Sender: BRAINTREE
  Company Number: JP-BRAINTREE LABORATORIES, INC.-2024BTE00430

PATIENT
  Age: 58 Year
  Sex: Female
  Weight: 48 kg

DRUGS (7)
  1. MAGNESIUM SULFATE\POTASSIUM SULFATE\SODIUM SULFATE [Suspect]
     Active Substance: MAGNESIUM SULFATE\POTASSIUM SULFATE\SODIUM SULFATE
     Indication: Colonoscopy
     Dosage: 600 ML/DAY
     Route: 048
     Dates: start: 20240624, end: 20240624
  2. MAGNESIUM CITRATE [Concomitant]
     Active Substance: MAGNESIUM CITRATE
     Indication: Colonoscopy
     Dosage: 50 G, 1X/DAY
     Route: 048
     Dates: start: 20240623, end: 20240623
  3. DIMETHICONE [Concomitant]
     Active Substance: DIMETHICONE
     Indication: Colonoscopy
     Dosage: 10 ML, 1X/DAY
     Route: 048
     Dates: start: 20240624, end: 20240624
  4. BUTYLSCOPOLAMINE BROMIDE [Concomitant]
     Active Substance: BUTYLSCOPOLAMINE BROMIDE
     Indication: Colonoscopy
     Dosage: 20 MG, 1X/DAY
     Route: 042
     Dates: start: 20240624, end: 20240624
  5. MEPERIDINE HYDROCHLORIDE [Concomitant]
     Active Substance: MEPERIDINE HYDROCHLORIDE
     Indication: Analgesic therapy
     Dosage: 35 MG, 1X/DAY
     Route: 042
     Dates: start: 20020624, end: 20240624
  6. XYLOCAINE [Concomitant]
     Active Substance: LIDOCAINE HYDROCHLORIDE
     Indication: Colonoscopy
     Dosage: 20 ML, 1X/DAY
     Route: 065
     Dates: start: 20240624, end: 20240624
  7. NALOXONE HYDROCHLORIDE [Concomitant]
     Active Substance: NALOXONE HYDROCHLORIDE
     Indication: Reversal of analgesia
     Dosage: 0.2 MG, 1X/DAY
     Route: 042
     Dates: start: 20240624, end: 20240624

REACTIONS (2)
  - Hyponatraemia [Recovered/Resolved]
  - Vomiting [Recovered/Resolved]

NARRATIVE: CASE EVENT DATE: 20240624
